FAERS Safety Report 7038395-5 (Version None)
Quarter: 2010Q4

REPORT INFORMATION
  Report Type: 
  Country: None (occurrence: None)
  Receive Date: 20101011
  Receipt Date: 20100303
  Transmission Date: 20110411
  Serious: No
  Sender: FDA-Public Use
  Company Number: US-PFIZER INC-2010028534

PATIENT
  Sex: Male
  Weight: 108.84 kg

DRUGS (3)
  1. NEURONTIN [Suspect]
     Indication: SLEEP DISORDER
     Dosage: 1600 MG, UNK
     Dates: start: 20090101
  2. WELLBUTRIN [Concomitant]
  3. ADDERALL 10 [Concomitant]

REACTIONS (2)
  - PAROSMIA [None]
  - SKIN ODOUR ABNORMAL [None]
